FAERS Safety Report 14787624 (Version 1)
Quarter: 2018Q2

REPORT INFORMATION
  Report Type: Spontaneous
  Country: US (occurrence: US)
  Receive Date: 20180421
  Receipt Date: 20180421
  Transmission Date: 20180711
  Serious: No
  Sender: FDA-Public Use
  Company Number: US-DUCHESNAY INC.-2017US017941

PATIENT
  Age: 54 Year
  Sex: Female

DRUGS (1)
  1. OSPHENA [Suspect]
     Active Substance: OSPEMIFENE
     Indication: PRODUCT USED FOR UNKNOWN INDICATION
     Dosage: 60 MG, DAILY
     Route: 048
     Dates: start: 201709, end: 201709

REACTIONS (5)
  - Mood swings [Unknown]
  - Hyperhidrosis [Unknown]
  - Urticaria [Unknown]
  - Thinking abnormal [Unknown]
  - Therapy cessation [None]

NARRATIVE: CASE EVENT DATE: 201709
